FAERS Safety Report 24054756 (Version 1)
Quarter: 2024Q3

REPORT INFORMATION
  Report Type: Spontaneous
  Country: DE (occurrence: DE)
  Receive Date: 20240705
  Receipt Date: 20240705
  Transmission Date: 20241017
  Serious: Yes (Life-Threatening, Hospitalization, Other)
  Sender: INSUD PHARMA
  Company Number: None

PATIENT
  Age: 22 Year
  Sex: Female
  Weight: 83 kg

DRUGS (2)
  1. ETHINYL ESTRADIOL\ETONOGESTREL [Suspect]
     Active Substance: ETHINYL ESTRADIOL\ETONOGESTREL
     Indication: Heavy menstrual bleeding
     Dosage: ANWENDUNG SEIT 3.5 BIS 4 JAHREN
     Route: 067
  2. ETHINYL ESTRADIOL\ETONOGESTREL [Suspect]
     Active Substance: ETHINYL ESTRADIOL\ETONOGESTREL
     Indication: Dysmenorrhoea

REACTIONS (10)
  - Anaphylactic shock [Recovered/Resolved]
  - Urticaria [Recovered/Resolved]
  - Pulse absent [Recovered/Resolved]
  - Cyanosis [Recovered/Resolved]
  - Syncope [Recovered/Resolved]
  - Paraesthesia [Recovered/Resolved]
  - Pallor [Recovered/Resolved]
  - Rash [Recovered/Resolved]
  - Urticaria [Recovered/Resolved]
  - Erythema [Recovered/Resolved]

NARRATIVE: CASE EVENT DATE: 20230801
